FAERS Safety Report 4775741-7 (Version None)
Quarter: 2005Q3

REPORT INFORMATION
  Report Type: 
  Country: None (occurrence: None)
  Receive Date: 20050922
  Receipt Date: 20050912
  Transmission Date: 20060218
  Serious: Yes (Hospitalization)
  Sender: FDA-Public Use
  Company Number: PHHO2005MX14594

PATIENT
  Age: 70 Year
  Sex: Female

DRUGS (3)
  1. ZELMAC / HTF 919A [Suspect]
     Indication: IRRITABLE BOWEL SYNDROME
     Dosage: 6 MG, BID
  2. PANTOZOL [Concomitant]
  3. DIOVAN [Suspect]
     Dosage: 80 MG, QD

REACTIONS (2)
  - COLOSTOMY [None]
  - ILEOSTOMY [None]
